FAERS Safety Report 13068472 (Version 2)
Quarter: 2017Q2

REPORT INFORMATION
  Report Type: Report from Study
  Country: US (occurrence: US)
  Receive Date: 20161228
  Receipt Date: 20170417
  Transmission Date: 20170830
  Serious: Yes (Hospitalization)
  Sender: FDA-Public Use
  Company Number: PHEH2016US033808

PATIENT
  Sex: Male

DRUGS (1)
  1. TOBI PODHALER [Suspect]
     Active Substance: TOBRAMYCIN
     Indication: PRODUCT USED FOR UNKNOWN INDICATION
     Dosage: UNK
     Route: 065

REACTIONS (3)
  - Malaise [Unknown]
  - Chronic obstructive pulmonary disease [Unknown]
  - Hypoxia [Unknown]
